FAERS Safety Report 4589522-0 (Version None)
Quarter: 2005Q1

REPORT INFORMATION
  Report Type: 
  Country: None (occurrence: None)
  Receive Date: 20050216
  Receipt Date: 20050201
  Transmission Date: 20050727
  Serious: Yes (Hospitalization)
  Sender: FDA-Public Use
  Company Number: JP-2005-001320

PATIENT
  Age: 63 Year
  Sex: Male

DRUGS (1)
  1. PROSCOPE 300 (IOPROMIDE) INFUSION [Suspect]
     Indication: ANGIOGRAM CEREBRAL
     Dosage: 100 ML, 1 DOSE, INTRAVENOUS
     Route: 042
     Dates: start: 20050127, end: 20050127

REACTIONS (10)
  - CHOKING SENSATION [None]
  - DYSPNOEA [None]
  - ERYTHEMA [None]
  - FLUSHING [None]
  - HYPERAEMIA [None]
  - NAUSEA [None]
  - SHOCK [None]
  - SNEEZING [None]
  - STARING [None]
  - VOMITING [None]
